FAERS Safety Report 7786154-8 (Version None)
Quarter: 2011Q3

REPORT INFORMATION
  Report Type: 
  Country: None (occurrence: None)
  Receive Date: 20110929
  Receipt Date: 20110926
  Transmission Date: 20111222
  Serious: Yes (Death, Life-Threatening)
  Sender: FDA-Public Use
  Company Number: JP-PFIZER INC-2010141915

PATIENT
  Age: 54 Year
  Sex: Female
  Weight: 53 kg

DRUGS (11)
  1. LASIX [Concomitant]
     Dosage: 40 MG, 1X/DAY
  2. POLARAMINE [Concomitant]
     Dosage: 2 MG, 3X/DAY
  3. PROCHLORPERAZINE [Concomitant]
     Dosage: 5 MG, 3X/DAY
  4. LANSOPRAZOLE [Concomitant]
     Dosage: 15 MG, 1X/DAY
  5. TEMSIROLIMUS [Suspect]
     Indication: RENAL CELL CARCINOMA
     Dosage: 15 MG, WEEKLY
     Route: 042
     Dates: start: 20101006, end: 20101020
  6. MAGNESIUM SULFATE [Concomitant]
     Dosage: 330 MG, 3X/DAY
  7. DECADRON [Concomitant]
     Dosage: 0.5 MG, 2X/DAY
  8. PURSENNID [Concomitant]
     Dosage: 36 MG, UNK
  9. FERRO-GRADUMET [Concomitant]
     Dosage: 105 MG, 1X/DAY
  10. SELBEX [Concomitant]
     Dosage: 50 MG, 3X/DAY
  11. VOLTAREN [Concomitant]
     Dosage: 25 MG, 3X/DAY

REACTIONS (4)
  - DYSPNOEA [None]
  - DISEASE PROGRESSION [None]
  - RENAL CELL CARCINOMA [None]
  - PLEURAL EFFUSION [None]
